FAERS Safety Report 7721436-7 (Version None)
Quarter: 2011Q3

REPORT INFORMATION
  Report Type: 
  Country: None (occurrence: None)
  Receive Date: 20110831
  Receipt Date: 20110822
  Transmission Date: 20111222
  Serious: Yes (Hospitalization)
  Sender: FDA-Public Use
  Company Number: US-ROCHE-798453

PATIENT
  Age: 65 Year
  Sex: Female
  Weight: 98 kg

DRUGS (5)
  1. DOCETAXEL [Suspect]
     Route: 065
     Dates: start: 20110809
  2. COUMADIN [Concomitant]
     Indication: THROMBOSIS PROPHYLAXIS
  3. DILTIAZEM [Concomitant]
     Indication: THROMBOSIS PROPHYLAXIS
  4. TRASTUZUMAB [Suspect]
     Route: 065
     Dates: start: 20110809
  5. AVASTIN [Suspect]
     Route: 041
     Dates: start: 20110809, end: 20110809

REACTIONS (4)
  - DIARRHOEA [None]
  - NAUSEA [None]
  - DEHYDRATION [None]
  - VOMITING [None]
